FAERS Safety Report 10475862 (Version 1)
Quarter: 2014Q3

REPORT INFORMATION
  Report Type: Spontaneous
  Country: US (occurrence: US)
  Receive Date: 20140925
  Receipt Date: 20140925
  Transmission Date: 20150326
  Serious: No
  Sender: FDA-Public Use
  Company Number: US-GLAXOSMITHKLINE-A1081645A

PATIENT
  Sex: Female

DRUGS (4)
  1. LIPITOR [Suspect]
     Active Substance: ATORVASTATIN CALCIUM
     Indication: PRODUCT USED FOR UNKNOWN INDICATION
     Route: 065
  2. BLOOD PRESSURE MEDICATION [Suspect]
     Active Substance: UNSPECIFIED INGREDIENT
  3. ANTIBIOTIC [Suspect]
     Active Substance: UNSPECIFIED INGREDIENT
  4. COREG [Suspect]
     Active Substance: CARVEDILOL
     Indication: CARDIOMYOPATHY
     Route: 065

REACTIONS (8)
  - Muscle spasms [Not Recovered/Not Resolved]
  - Memory impairment [Unknown]
  - Palpitations [Unknown]
  - Tendon disorder [Unknown]
  - Hand deformity [Unknown]
  - Blood pressure abnormal [Unknown]
  - Parathyroid disorder [Unknown]
  - Movement disorder [Unknown]
